FAERS Safety Report 5041918-9 (Version None)
Quarter: 2006Q2

REPORT INFORMATION
  Report Type: 
  Country: None (occurrence: None)
  Receive Date: 20060627
  Receipt Date: 20060612
  Transmission Date: 20061013
  Serious: Yes (Hospitalization, Other)
  Sender: FDA-Public Use
  Company Number: HQWYE464322MAR06

PATIENT
  Age: 53 Year
  Sex: Female
  Weight: 117.59 kg

DRUGS (10)
  1. PREMPRO [Suspect]
     Indication: MENOPAUSE
     Dosage: 0.625/2.5MG ONCE DAILY, ORAL
     Route: 048
     Dates: start: 19960101, end: 20030101
  2. MULTIVITAMINS AND IRON (MULTIVITAMINS AND IRON) [Concomitant]
  3. LIPITOR [Concomitant]
  4. INSULIN [Concomitant]
  5. PROZAC [Concomitant]
  6. ASPIRIN [Concomitant]
  7. VERAPAMIL - SLOW RELEASE (VERAPAMIL HYDROCHLORIDE) [Concomitant]
  8. COZAAR [Concomitant]
  9. GLUCOPHAGE [Concomitant]
  10. HYDROCHLOROTHIAZIDE [Concomitant]

REACTIONS (6)
  - BREAST CANCER IN SITU [None]
  - BREAST CANCER METASTATIC [None]
  - EJECTION FRACTION DECREASED [None]
  - METASTASES TO LYMPH NODES [None]
  - UTERINE ENLARGEMENT [None]
  - WOUND INFECTION [None]
